FAERS Safety Report 20655175 (Version 1)
Quarter: 2022Q1

REPORT INFORMATION
  Report Type: Spontaneous
  Country: IL (occurrence: IL)
  Receive Date: 20220330
  Receipt Date: 20220330
  Transmission Date: 20220424
  Serious: Yes (Life-Threatening, Other)
  Sender: FDA-Public Use
  Company Number: IL-009507513-2203ISR008212

PATIENT
  Age: 73 Year
  Sex: Male

DRUGS (14)
  1. MOLNUPIRAVIR [Suspect]
     Active Substance: MOLNUPIRAVIR
     Route: 048
     Dates: start: 20220120, end: 20220123
  2. ATORVASTATIN [Concomitant]
     Active Substance: ATORVASTATIN
     Dosage: UNK
  3. CALCIUM [Concomitant]
     Active Substance: CALCIUM
  4. AMPICILLIN [Concomitant]
     Active Substance: AMPICILLIN
  5. CHOLECALCIFEROL [Concomitant]
     Active Substance: CHOLECALCIFEROL
  6. BROTIZOLAM [Concomitant]
     Active Substance: BROTIZOLAM
  7. NEXIUM I.V. [Concomitant]
     Active Substance: ESOMEPRAZOLE SODIUM
  8. CIPRALEX [Concomitant]
     Active Substance: ESCITALOPRAM OXALATE
  9. FOLIC ACID [Concomitant]
     Active Substance: FOLIC ACID
  10. AMLOW [AMLODIPINE BESILATE] [Concomitant]
  11. MEMOX [Concomitant]
  12. ACLASTA [Concomitant]
     Active Substance: ZOLEDRONIC ACID
  13. ELIQUIS [Concomitant]
     Active Substance: APIXABAN
  14. DONEZEPIL ACCORD [Concomitant]

REACTIONS (8)
  - Syncope [Unknown]
  - Loss of consciousness [Unknown]
  - Hyperhidrosis [Unknown]
  - Wheezing [Unknown]
  - Pyrexia [Unknown]
  - Atrial fibrillation [Unknown]
  - Tricuspid valve incompetence [Unknown]
  - Cardiac output decreased [Unknown]

NARRATIVE: CASE EVENT DATE: 20220101
